FAERS Safety Report 13408882 (Version 2)
Quarter: 2017Q4

REPORT INFORMATION
  Report Type: Spontaneous
  Country: US (occurrence: US)
  Receive Date: 20170406
  Receipt Date: 20171123
  Transmission Date: 20180320
  Serious: No
  Sender: FDA-Public Use
  Company Number: US-JNJFOC-20170224920

PATIENT
  Sex: Male

DRUGS (4)
  1. RISPERDAL [Suspect]
     Active Substance: RISPERIDONE
     Indication: CONDUCT DISORDER
     Route: 048
     Dates: start: 20030529, end: 20030906
  2. RISPERDAL [Suspect]
     Active Substance: RISPERIDONE
     Indication: CONDUCT DISORDER
     Route: 048
     Dates: start: 20010702, end: 20020924
  3. RISPERDAL [Suspect]
     Active Substance: RISPERIDONE
     Indication: ATTENTION DEFICIT/HYPERACTIVITY DISORDER
     Route: 048
     Dates: start: 20010702, end: 20020924
  4. RISPERDAL [Suspect]
     Active Substance: RISPERIDONE
     Indication: ATTENTION DEFICIT/HYPERACTIVITY DISORDER
     Route: 048
     Dates: start: 20030529, end: 20030906

REACTIONS (2)
  - Gynaecomastia [Unknown]
  - Emotional disorder [Unknown]
